FAERS Safety Report 8559761-2 (Version None)
Quarter: 2012Q3

REPORT INFORMATION
  Report Type: 
  Country: None (occurrence: None)
  Receive Date: 20120802
  Receipt Date: 20120727
  Transmission Date: 20120928
  Serious: Yes (Other)
  Sender: FDA-Public Use
  Company Number: CA-PFIZER INC-2012182680

PATIENT
  Age: 1 Year
  Sex: Female

DRUGS (2)
  1. PHENOBARBITAL [Concomitant]
  2. DILANTIN [Suspect]
     Dosage: UNK

REACTIONS (3)
  - INCORRECT STORAGE OF DRUG [None]
  - CONVULSION [None]
  - DRUG LEVEL DECREASED [None]
